FAERS Safety Report 16169496 (Version 1)
Quarter: 2019Q2

REPORT INFORMATION
  Report Type: Spontaneous
  Country: BG (occurrence: BG)
  Receive Date: 20190408
  Receipt Date: 20190408
  Transmission Date: 20190711
  Serious: Yes (Hospitalization)
  Sender: FDA-Public Use
  Company Number: BG-NOVAST LABORATORIES, LTD-BG-2019NOV000203

PATIENT
  Sex: Male

DRUGS (2)
  1. CARISOPRODOL\ASPIRIN [Suspect]
     Active Substance: ASPIRIN\CARISOPRODOL
     Indication: HYPERTENSION
     Dosage: 100 MG ONCE IN THE EVENING
     Route: 065
  2. IRBESARTAN HYDROCHLOROTHIAZIDE [Suspect]
     Active Substance: HYDROCHLOROTHIAZIDE\IRBESARTAN
     Indication: HYPERTENSION
     Dosage: 150 MG/12.5 MG ONCE IN THE MORNING
     Route: 065

REACTIONS (1)
  - Malignant melanoma [Recovered/Resolved]
